FAERS Safety Report 6173351-0 (Version None)
Quarter: 2009Q2

REPORT INFORMATION
  Report Type: 
  Country: None (occurrence: None)
  Receive Date: 20090430
  Receipt Date: 20090421
  Transmission Date: 20091009
  Serious: Yes (Hospitalization)
  Sender: FDA-Public Use
  Company Number: FI-ELI_LILLY_AND_COMPANY-FI200904004427

PATIENT
  Age: 10 Year
  Sex: Female

DRUGS (2)
  1. STRATTERA [Suspect]
     Indication: ATTENTION DEFICIT/HYPERACTIVITY DISORDER
     Dosage: 60 MG, DAILY (1/D)
     Route: 048
     Dates: start: 20090301, end: 20090101
  2. STRATTERA [Suspect]
     Dosage: 60 MG, DAILY (1/D)
     Route: 048
     Dates: start: 20090101, end: 20090401

REACTIONS (4)
  - DIARRHOEA [None]
  - HALLUCINATION [None]
  - PYREXIA [None]
  - VOMITING [None]
